FAERS Safety Report 21009516 (Version 1)
Quarter: 2022Q2

REPORT INFORMATION
  Report Type: Spontaneous
  Country: US (occurrence: None)
  Receive Date: 20220625
  Receipt Date: 20220625
  Transmission Date: 20220720
  Serious: Yes (Other)
  Sender: FDA-Public Use
  Company Number: None

PATIENT
  Age: 53 Year
  Sex: Female
  Weight: 72 kg

DRUGS (7)
  1. DESVENLAFAXINE SUCCINATE [Suspect]
     Active Substance: DESVENLAFAXINE SUCCINATE
     Indication: Depression
     Dosage: FREQUENCY : DAILY;?
     Route: 048
     Dates: start: 20220624, end: 20220625
  2. SYNTHROID [Concomitant]
     Active Substance: LEVOTHYROXINE SODIUM
  3. CYTOMEL [Concomitant]
     Active Substance: LIOTHYRONINE SODIUM
  4. POTASSIUM [Concomitant]
     Active Substance: POTASSIUM
  5. MAGNESIUM [Concomitant]
     Active Substance: MAGNESIUM
  6. CALCIUM [Concomitant]
     Active Substance: CALCIUM
  7. multivitamin/mineral [Concomitant]

REACTIONS (3)
  - Vertigo [None]
  - Nausea [None]
  - Headache [None]

NARRATIVE: CASE EVENT DATE: 20220624
